FAERS Safety Report 8247010-4 (Version None)
Quarter: 2012Q1

REPORT INFORMATION
  Report Type: 
  Country: None (occurrence: None)
  Receive Date: 20120330
  Receipt Date: 20120330
  Transmission Date: 20120608
  Serious: No
  Sender: FDA-Public Use
  Company Number: None

PATIENT
  Age: 58 Year
  Sex: Male
  Weight: 101.6 kg

DRUGS (1)
  1. EFFEXOR [Suspect]
     Indication: DEPRESSION
     Dosage: NA AT THIS TIME

REACTIONS (6)
  - DYSKINESIA [None]
  - OEDEMA PERIPHERAL [None]
  - TREMOR [None]
  - DYSARTHRIA [None]
  - DIABETES MELLITUS [None]
  - NEUROPATHY PERIPHERAL [None]
